FAERS Safety Report 10537768 (Version 1)
Quarter: 2014Q4

REPORT INFORMATION
  Report Type: Spontaneous
  Country: US (occurrence: None)
  Receive Date: 20141022
  Receipt Date: 20141022
  Transmission Date: 20150529
  Serious: Yes (Hospitalization)
  Sender: FDA-Public Use
  Company Number: None

PATIENT
  Age: 94 Year
  Sex: Male
  Weight: 84 kg

DRUGS (1)
  1. QUETIAPINE [Suspect]
     Active Substance: QUETIAPINE
     Dosage: 12.5 MG AT BEDTIME PO
     Route: 048
     Dates: start: 20140720, end: 20140805

REACTIONS (3)
  - Hypercapnia [None]
  - Depressed level of consciousness [None]
  - Sedation [None]

NARRATIVE: CASE EVENT DATE: 20140803
